FAERS Safety Report 7987372-6 (Version None)
Quarter: 2011Q4

REPORT INFORMATION
  Report Type: 
  Country: None (occurrence: None)
  Receive Date: 20111216
  Receipt Date: 20111025
  Transmission Date: 20120403
  Serious: No
  Sender: FDA-Public Use
  Company Number: US-BRISTOL-MYERS SQUIBB COMPANY-16193542

PATIENT
  Age: 51 Year
  Sex: Female

DRUGS (5)
  1. LAMICTAL [Concomitant]
  2. NUVIGIL [Concomitant]
  3. SONATA [Concomitant]
     Dosage: 1 DF=10 TO 20 MG
  4. CYMBALTA [Concomitant]
  5. ABILIFY [Suspect]

REACTIONS (1)
  - WHITE BLOOD CELL COUNT DECREASED [None]
